FAERS Safety Report 8581292-4 (Version None)
Quarter: 2012Q3

REPORT INFORMATION
  Report Type: 
  Country: None (occurrence: None)
  Receive Date: 20120809
  Receipt Date: 20120806
  Transmission Date: 20120928
  Serious: Yes (Other)
  Sender: FDA-Public Use
  Company Number: PHHY2012NL068193

PATIENT
  Age: 31 Year
  Sex: Male

DRUGS (1)
  1. TERBINAFINE HCL [Suspect]
     Indication: DERMATOPHYTOSIS
     Dosage: 250 MG, QD
     Route: 048

REACTIONS (2)
  - DEAFNESS NEUROSENSORY [None]
  - HEARING IMPAIRED [None]
